FAERS Safety Report 4957905-2 (Version None)
Quarter: 2006Q1

REPORT INFORMATION
  Report Type: 
  Country: None (occurrence: None)
  Receive Date: 20060324
  Receipt Date: 20060309
  Transmission Date: 20060701
  Serious: Yes (Hospitalization)
  Sender: FDA-Public Use
  Company Number: EWC050845534

PATIENT
  Age: 64 Year
  Sex: Male
  Weight: 90 kg

DRUGS (9)
  1. CIALIS [Suspect]
     Indication: ERECTILE DYSFUNCTION
     Dosage: 20 MG, AS NEEDED, ORAL
     Route: 048
     Dates: start: 20041001
  2. IRBESARTAN [Concomitant]
  3. HJERTEMAGNYL [Concomitant]
  4. ORABET (METFORMIN HYDROCHLORIDE) [Concomitant]
  5. HUMULIN      /PRI/(INSULIN HUMAN) [Concomitant]
  6. IMOVAN (ZOPICLONE) [Concomitant]
  7. REPAGLINIDE [Concomitant]
  8. GLUCOBAY (ACARBOSE) [Concomitant]
  9. SIMVASTATIN [Concomitant]

REACTIONS (1)
  - ENCEPHALITIS HERPES [None]
